FAERS Safety Report 11184805 (Version 12)
Quarter: 2020Q4

REPORT INFORMATION
  Report Type: Spontaneous
  Country: US (occurrence: US)
  Receive Date: 20150612
  Receipt Date: 20201104
  Transmission Date: 20210113
  Serious: Yes (Hospitalization, Other)
  Sender: FDA-Public Use
  Company Number: US-PFIZER INC-2015195742

PATIENT
  Age: 72 Year
  Sex: Female
  Weight: 91 kg

DRUGS (17)
  1. CELEBREX [Suspect]
     Active Substance: CELECOXIB
     Indication: SPINAL OSTEOARTHRITIS
     Dosage: 200 MG, 2X/DAY
     Route: 048
     Dates: start: 1999
  2. CELEBREX [Suspect]
     Active Substance: CELECOXIB
     Indication: VERTEBRAL OSTEOPHYTE
     Dosage: 200 MG, 1X/DAY, (TAKING IT ONCE A DAY WHEN SHE REALIZED SHE WAS GETTING LOW TO MAKE IT LAST LONGER)
  3. CELECOXIB. [Suspect]
     Active Substance: CELECOXIB
     Dosage: 200 MG
     Dates: start: 20150310
  4. SYNTHROID [Concomitant]
     Active Substance: LEVOTHYROXINE SODIUM
     Indication: THYROID CANCER
     Dosage: 0.125 MG, 1X/DAY
     Route: 048
  5. BENTYL [Concomitant]
     Active Substance: DICYCLOMINE HYDROCHLORIDE
     Indication: IRRITABLE BOWEL SYNDROME
     Dosage: 1 DF, (1 TABLET 2-3 TIMES A DAY)
     Route: 048
  6. VITAMIN B12 [Concomitant]
     Active Substance: CYANOCOBALAMIN
     Indication: SUPPLEMENTATION THERAPY
     Dosage: 1 DF, 1X/DAY
     Route: 048
  7. DICYCLOMINE [Concomitant]
     Active Substance: DICYCLOMINE HYDROCHLORIDE
     Dosage: ^10^
     Dates: start: 1999
  8. CELEBREX [Suspect]
     Active Substance: CELECOXIB
     Indication: NERVE COMPRESSION
     Dosage: 400 MG, DAILY, (2 CAPSULES A DAY)
  9. SYNTHROID [Concomitant]
     Active Substance: LEVOTHYROXINE SODIUM
     Indication: THYROIDECTOMY
  10. IRON [Concomitant]
     Active Substance: IRON
     Indication: ANAEMIA
     Dosage: 65 MG, 1X/DAY
     Route: 048
  11. CELEBREX [Suspect]
     Active Substance: CELECOXIB
     Indication: ARTHRALGIA
     Dosage: 200 MG, SOMETIMES ONE AND SOMETIMES TWO DEPENDING ON THE ACTIVITIES OF THE DAY (AS NEEDED)
     Route: 048
     Dates: start: 1999
  12. CELEBREX [Suspect]
     Active Substance: CELECOXIB
     Dosage: 400 MG, 2X/DAY (2 CAPSULES TWICE A DAY WHEN SHE WAS A LOT HEAVIER)
  13. ATENOLOL. [Concomitant]
     Active Substance: ATENOLOL
     Indication: MITRAL VALVE PROLAPSE
     Dosage: 50 MG, 2X/DAY
     Route: 048
     Dates: start: 2000
  14. BUSPAR [Concomitant]
     Active Substance: BUSPIRONE HYDROCHLORIDE
     Indication: IRRITABLE BOWEL SYNDROME
     Dosage: 10 MG, 2X/DAY
     Route: 048
     Dates: start: 2005
  15. CALTRATE [Concomitant]
     Active Substance: CALCIUM CARBONATE
     Indication: SUPPLEMENTATION THERAPY
     Dosage: 1 DF, 1X/DAY
     Route: 048
  16. GABAPENTIN. [Concomitant]
     Active Substance: GABAPENTIN
     Indication: NERVE COMPRESSION
     Dosage: 1 DF, 1X/DAY; (AT NIGHT)
     Route: 048
  17. CELEBREX [Suspect]
     Active Substance: CELECOXIB
     Indication: ARTHRITIS
     Dosage: 200 MG, 2X/DAY(200MG CAPSULE, 1 CAPSULE TWICE DAILY BY MOUTH)
     Route: 048

REACTIONS (15)
  - Fall [Unknown]
  - Arthropathy [Unknown]
  - Intentional product use issue [Unknown]
  - Thyroid cancer [Not Recovered/Not Resolved]
  - Arthritis [Not Recovered/Not Resolved]
  - Drug ineffective [Unknown]
  - Muscular weakness [Unknown]
  - Vertebral osteophyte [Not Recovered/Not Resolved]
  - Disease progression [Not Recovered/Not Resolved]
  - Back disorder [Unknown]
  - Parathyroid tumour malignant [Unknown]
  - Nephrolithiasis [Not Recovered/Not Resolved]
  - Ovarian neoplasm [Unknown]
  - Nerve compression [Not Recovered/Not Resolved]
  - Weight decreased [Unknown]

NARRATIVE: CASE EVENT DATE: 20140819
